FAERS Safety Report 14869977 (Version 13)
Quarter: 2020Q4

REPORT INFORMATION
  Report Type: Spontaneous
  Country: ES (occurrence: ES)
  Receive Date: 20180509
  Receipt Date: 20201020
  Transmission Date: 20210113
  Serious: Yes (Death, Hospitalization, Other)
  Sender: FDA-Public Use
  Company Number: ES-MYLANLABS-2018M1029772

PATIENT
  Age: 72 Year
  Sex: Female

DRUGS (17)
  1. AMITRIPTYLINE [Suspect]
     Active Substance: AMITRIPTYLINE
     Indication: DEPRESSION
     Dosage: UNK (1/2-1/2-1)
     Route: 048
     Dates: start: 201404
  2. LUDIOMIL [Suspect]
     Active Substance: MAPROTILINE HYDROCHLORIDE
     Dosage: 18.75 MILLIGRAM, BID
     Route: 048
     Dates: start: 201404
  3. BRINTELLIX [Interacting]
     Active Substance: VORTIOXETINE HYDROBROMIDE
     Dosage: 5 MG, 1 VEZ AL D?A || DOSIS UNIDAD FRECUENCIA: 5 MG-MILIGRAMOS  DOSIS POR TOMA: 5 MG-MILIGRAMOS
     Route: 048
     Dates: start: 20160310, end: 20160402
  4. ASENAPINE MALEATE [Suspect]
     Active Substance: ASENAPINE MALEATE
     Indication: DEPRESSION
     Dosage: UNK
     Route: 048
  5. FLUOXETINE [Suspect]
     Active Substance: FLUOXETINE HYDROCHLORIDE
     Indication: DEPRESSION
     Dosage: UNK
     Route: 065
  6. LUDIOMIL [Suspect]
     Active Substance: MAPROTILINE HYDROCHLORIDE
     Dosage: 18.75 MG, Q12H
     Route: 048
     Dates: start: 201404
  7. BRINTELLIX [Interacting]
     Active Substance: VORTIOXETINE HYDROBROMIDE
     Indication: DEPRESSION
     Dosage: 10 MG,QD
     Route: 065
  8. BRINTELLIX [Interacting]
     Active Substance: VORTIOXETINE HYDROBROMIDE
     Dosage: 120 MILLIGRAM
  9. MIRTAZAPINE. [Suspect]
     Active Substance: MIRTAZAPINE
     Indication: DEPRESSION
     Dosage: UNK
     Route: 048
  10. AMITRIPTYLINE [Suspect]
     Active Substance: AMITRIPTYLINE
     Dosage: UNK
  11. ALPRAZOLAM. [Suspect]
     Active Substance: ALPRAZOLAM
     Indication: PRODUCT USED FOR UNKNOWN INDICATION
     Dosage: 1 MILLIGRAM, QD
     Route: 048
  12. LUDIOMIL [Suspect]
     Active Substance: MAPROTILINE HYDROCHLORIDE
     Indication: DEPRESSION
     Dosage: 75 MG, UNK (1/2-0-1/2)
     Route: 048
     Dates: start: 201404, end: 201404
  13. LUDIOMIL [Suspect]
     Active Substance: MAPROTILINE HYDROCHLORIDE
     Dosage: 37.5 MILLIGRAM, QD
     Route: 065
  14. BRINTELLIX [Interacting]
     Active Substance: VORTIOXETINE HYDROBROMIDE
     Dosage: UNK
  15. ALPRAZOLAM. [Interacting]
     Active Substance: ALPRAZOLAM
     Dosage: 1 MILLIGRAM, QD
     Route: 048
     Dates: start: 201404
  16. FLUOXETINE [Suspect]
     Active Substance: FLUOXETINE HYDROCHLORIDE
     Dosage: UNK
     Route: 065
  17. FLUOXETINE [Suspect]
     Active Substance: FLUOXETINE HYDROCHLORIDE
     Dosage: UNK

REACTIONS (10)
  - Respiration abnormal [Fatal]
  - Drug interaction [Unknown]
  - Cerebrovascular accident [Fatal]
  - Seizure [Fatal]
  - Cardiac arrest [Fatal]
  - Embolic stroke [Fatal]
  - Hyponatraemia [Fatal]
  - Depressed level of consciousness [Fatal]
  - Polydipsia [Fatal]
  - Aspiration [Fatal]

NARRATIVE: CASE EVENT DATE: 201604
